FAERS Safety Report 7636797 (Version 3)
Quarter: 2015Q1

REPORT INFORMATION
  Report Type: Report from Study
  Country: RU (occurrence: RU)
  Receive Date: 20101021
  Receipt Date: 20150213
  Transmission Date: 20150721
  Serious: Yes (Hospitalization)
  Sender: FDA-Public Use
  Company Number: RU-ROCHE-717568

PATIENT
  Age: 39 Year
  Sex: Female
  Weight: 64.4 kg

DRUGS (5)
  1. PLACEBO [Suspect]
     Active Substance: UNSPECIFIED INGREDIENT
     Indication: RHEUMATOID ARTHRITIS
     Dosage: DRUG NAME:MTX/PBO. LAST DOSE PRIOR TO SAE: 22 JULY 2010.
     Route: 048
     Dates: start: 20100114, end: 20100727
  2. TOCILIZUMAB [Suspect]
     Active Substance: TOCILIZUMAB
     Indication: RHEUMATOID ARTHRITIS
     Dosage: UNITS:ML, LAST DOSE PRIOR TO SAE: 29 JUNE 2010
     Route: 042
     Dates: start: 20100112, end: 20100727
  3. FOLIC ACID. [Concomitant]
     Active Substance: FOLIC ACID
     Route: 065
  4. NIMESULIDE [Concomitant]
     Active Substance: NIMESULIDE
     Route: 065
  5. OMEPRAZOLE. [Concomitant]
     Active Substance: OMEPRAZOLE
     Route: 065

REACTIONS (1)
  - Alveolitis [Recovered/Resolved with Sequelae]

NARRATIVE: CASE EVENT DATE: 20100723
